FAERS Safety Report 5128160-8 (Version None)
Quarter: 2006Q4

REPORT INFORMATION
  Report Type: 
  Country: None (occurrence: None)
  Receive Date: 20061017
  Receipt Date: 20061010
  Transmission Date: 20070319
  Serious: Yes (Hospitalization, Other)
  Sender: FDA-Public Use
  Company Number: US-BAYER-200614286BCC

PATIENT
  Age: 50 Year
  Sex: Male
  Weight: 51 kg

DRUGS (2)
  1. ALKA SELTZER PLUS EFFERVESCENT FLU [Suspect]
     Indication: NASOPHARYNGITIS
     Dosage: TOTAL DAILY DOSE: 1000 MG  UNIT DOSE: 500 MG
     Route: 048
     Dates: start: 20060926
  2. HEART MEDICATIONS [Concomitant]

REACTIONS (5)
  - DEHYDRATION [None]
  - DIZZINESS [None]
  - HYPOTENSION [None]
  - PNEUMONIA [None]
  - SYNCOPE [None]
